FAERS Safety Report 12263373 (Version 3)
Quarter: 2016Q2

REPORT INFORMATION
  Report Type: Spontaneous
  Country: JP (occurrence: JP)
  Receive Date: 20160413
  Receipt Date: 20160613
  Transmission Date: 20160815
  Serious: Yes (Death, Hospitalization, Disabling, Other)
  Sender: FDA-Public Use
  Company Number: JP-PFIZER INC-2016206002

PATIENT
  Age: 94 Year
  Sex: Female

DRUGS (1)
  1. LYRICA [Suspect]
     Active Substance: PREGABALIN
     Indication: HYPOAESTHESIA
     Dosage: 75 MG, 2X/DAY
     Route: 048
     Dates: start: 20120810, end: 20120812

REACTIONS (8)
  - Urinary tract infection [Fatal]
  - Pyrexia [Unknown]
  - Humerus fracture [Recovered/Resolved with Sequelae]
  - Dizziness [Unknown]
  - Fall [Recovered/Resolved with Sequelae]
  - Gait disturbance [Unknown]
  - Sepsis [Fatal]
  - Decreased appetite [Unknown]

NARRATIVE: CASE EVENT DATE: 20120812
